FAERS Safety Report 16644799 (Version 1)
Quarter: 2019Q3

REPORT INFORMATION
  Report Type: Spontaneous
  Country: US (occurrence: US)
  Receive Date: 20190729
  Receipt Date: 20190729
  Transmission Date: 20191004
  Serious: No
  Sender: FDA-Public Use
  Company Number: US-PRINSTON PHARMACEUTICAL INC.-2018PRN01434

PATIENT
  Age: 62 Year
  Sex: Female

DRUGS (2)
  1. ROPINIROLE. [Suspect]
     Active Substance: ROPINIROLE
     Dosage: UNK
  2. ROPINIROLE. [Suspect]
     Active Substance: ROPINIROLE
     Dosage: UNK

REACTIONS (5)
  - Feeling abnormal [Unknown]
  - Fatigue [Unknown]
  - Drug ineffective [Unknown]
  - Somnolence [Unknown]
  - Overdose [Unknown]
